FAERS Safety Report 4276202-4 (Version None)
Quarter: 2004Q1

REPORT INFORMATION
  Report Type: 
  Country: None (occurrence: None)
  Receive Date: 20040121
  Receipt Date: 20030328
  Transmission Date: 20041129
  Serious: No
  Sender: FDA-Public Use
  Company Number: US-GLAXOSMITHKLINE-A0402519A

PATIENT
  Age: 46 Year
  Sex: Male

DRUGS (5)
  1. ZIAGEN [Suspect]
     Indication: HIV INFECTION
     Dosage: 300MG TWICE PER DAY
     Route: 048
     Dates: start: 20030320, end: 20030327
  2. SUSTIVA [Concomitant]
  3. VIREAD [Concomitant]
  4. TRAZODONE HCL [Concomitant]
  5. UNKNOWN MEDICATION [Concomitant]

REACTIONS (4)
  - ARTHRALGIA [None]
  - MYALGIA [None]
  - PYREXIA [None]
  - RASH [None]
